FAERS Safety Report 17837811 (Version 1)
Quarter: 2020Q2

REPORT INFORMATION
  Report Type: Spontaneous
  Country: US (occurrence: US)
  Receive Date: 20200528
  Receipt Date: 20200528
  Transmission Date: 20200714
  Serious: No
  Sender: FDA-Public Use
  Company Number: US-NEXGEN PHARMA, INC.-2084294

PATIENT
  Age: 72 Year
  Sex: Female
  Weight: 76.82 kg

DRUGS (1)
  1. BAC 7029 (BUTALBITAL 50MG, ACETAMINOPHEN 300MG AND CAFFEINE 40MG. [Suspect]
     Active Substance: ACETAMINOPHEN\BUTALBITAL\CAFFEINE
     Indication: MIGRAINE
     Route: 048

REACTIONS (1)
  - Flat affect [Not Recovered/Not Resolved]
